FAERS Safety Report 26171479 (Version 1)
Quarter: 2025Q4

REPORT INFORMATION
  Report Type: Spontaneous
  Country: US (occurrence: US)
  Receive Date: 20251217
  Receipt Date: 20251217
  Transmission Date: 20260117
  Serious: No
  Sender: BAYER HEALTHCARE PHARMACEUTICALS INC.
  Company Number: US-BAYER-2025A166017

PATIENT
  Age: 57 Year
  Sex: Male

DRUGS (1)
  1. JIVI [Suspect]
     Active Substance: DAMOCTOCOG ALFA PEGOL
     Dosage: STRENGTH; 3383; INFUSED: 3200 IU
     Dates: start: 20251201

REACTIONS (1)
  - Dental operation [None]

NARRATIVE: CASE EVENT DATE: 20251201
